FAERS Safety Report 14318580 (Version 1)
Quarter: 2017Q4

REPORT INFORMATION
  Report Type: Spontaneous
  Country: CN (occurrence: CN)
  Receive Date: 20171222
  Receipt Date: 20171222
  Transmission Date: 20180321
  Serious: Yes (Other)
  Sender: FDA-Public Use
  Company Number: CN-BAYER-2017-242115

PATIENT
  Age: 49 Year
  Sex: Female

DRUGS (2)
  1. AVELOX [Suspect]
     Active Substance: MOXIFLOXACIN HYDROCHLORIDE
     Indication: STREPTOCOCCAL INFECTION
     Dosage: 0.4 G, QD
     Route: 041
  2. SOTALOL. [Suspect]
     Active Substance: SOTALOL
     Indication: ATRIAL FIBRILLATION
     Dosage: 1 DF, BID
     Route: 048

REACTIONS (8)
  - Loss of consciousness [None]
  - Cardiac arrest [None]
  - Drug interaction [None]
  - Drug level increased [None]
  - Atrial fibrillation [None]
  - Contraindicated drug prescribed [None]
  - Coma [None]
  - Toxicity to various agents [None]

NARRATIVE: CASE EVENT DATE: 201712
